FAERS Safety Report 5406155-4 (Version None)
Quarter: 2007Q3

REPORT INFORMATION
  Report Type: 
  Country: None (occurrence: None)
  Receive Date: 20070802
  Receipt Date: 20070802
  Transmission Date: 20080115
  Serious: Yes (Hospitalization)
  Sender: FDA-Public Use
  Company Number: None

PATIENT
  Age: 15 Year
  Sex: Female
  Weight: 40 kg

DRUGS (11)
  1. IRESSA [Suspect]
     Indication: ADENOCARCINOMA
     Dosage: 200 MG QD X 12 DAYS PO
     Route: 048
     Dates: start: 20070613, end: 20070619
  2. IRINOTECAN HCL [Suspect]
     Indication: ADENOCARCINOMA
     Dosage: 13 MG -QD X 5 DAYS- 2 PO
     Route: 048
     Dates: start: 20070613, end: 20070617
  3. FENTANYL [Concomitant]
  4. ELITEK [Concomitant]
  5. METHADONE HCL [Concomitant]
  6. METHADONE HCL [Concomitant]
  7. OMEPRAZOLE [Concomitant]
  8. SULFAMETHOXAZOLE AND TRIMETHOPRIM [Concomitant]
  9. MEPHYTON [Concomitant]
  10. LORAZEPAM [Concomitant]
  11. DIPHENHYDRAMINE HCL [Concomitant]

REACTIONS (30)
  - ABDOMINAL MASS [None]
  - BACTERIAL INFECTION [None]
  - BLOOD CREATININE INCREASED [None]
  - BLOOD MAGNESIUM DECREASED [None]
  - BLOOD POTASSIUM INCREASED [None]
  - BLOOD PRESSURE INCREASED [None]
  - BONE LESION [None]
  - FLUID IMBALANCE [None]
  - FLUID OVERLOAD [None]
  - HAEMATEMESIS [None]
  - HAEMATOCRIT DECREASED [None]
  - HAEMATURIA [None]
  - HAEMOGLOBIN DECREASED [None]
  - HYDRONEPHROSIS [None]
  - INTESTINAL DILATATION [None]
  - MUCOUS MEMBRANE DISORDER [None]
  - MUSCLE DISORDER [None]
  - NAUSEA [None]
  - NEUTROPHIL COUNT DECREASED [None]
  - OCCULT BLOOD [None]
  - OEDEMA [None]
  - ORAL INTAKE REDUCED [None]
  - OVARIAN MASS [None]
  - PROTHROMBIN LEVEL INCREASED [None]
  - REFUSAL OF TREATMENT BY RELATIVE [None]
  - RESPIRATORY RATE INCREASED [None]
  - STAPHYLOCOCCAL INFECTION [None]
  - URETHRAL OBSTRUCTION [None]
  - URINE KETONE BODY PRESENT [None]
  - VOMITING [None]
